FAERS Safety Report 18558463 (Version 1)
Quarter: 2020Q4

REPORT INFORMATION
  Report Type: Spontaneous
  Country: US (occurrence: US)
  Receive Date: 20201130
  Receipt Date: 20201130
  Transmission Date: 20210114
  Serious: No
  Sender: FDA-Public Use
  Company Number: US-CIPLA LTD.-2020US06963

PATIENT

DRUGS (2)
  1. BUDESONIDE. [Suspect]
     Active Substance: BUDESONIDE
     Dosage: 0.5 MG/2 ML, UNK, PARTICULAR BATCH
     Dates: start: 2020
  2. BUDESONIDE. [Suspect]
     Active Substance: BUDESONIDE
     Indication: RESPIRATORY DISORDER
     Dosage: UNK, REGULAR USER

REACTIONS (1)
  - Product storage error [Unknown]

NARRATIVE: CASE EVENT DATE: 2020
